FAERS Safety Report 11698292 (Version 2)
Quarter: 2016Q1

REPORT INFORMATION
  Report Type: Spontaneous
  Country: GB (occurrence: GB)
  Receive Date: 20151104
  Receipt Date: 20160114
  Transmission Date: 20160525
  Serious: Yes (Hospitalization)
  Sender: FDA-Public Use
  Company Number: GB-ASTRAZENECA-2015SF04612

PATIENT
  Age: 4 Month
  Sex: Female
  Weight: 2.7 kg

DRUGS (9)
  1. ORAMORPH [Suspect]
     Active Substance: MORPHINE SULFATE
     Dosage: 15 MG, 3-6 TIMES PER DAY AS REQUIRED
     Route: 064
  2. DAKTARIN [Concomitant]
     Active Substance: MICONAZOLE NITRATE
     Route: 065
  3. ORAMORPH [Suspect]
     Active Substance: MORPHINE SULFATE
     Route: 065
     Dates: start: 20150523, end: 20150601
  4. ESCITALOPRAM [Suspect]
     Active Substance: ESCITALOPRAM OXALATE
     Route: 064
  5. AZATHIOPRINE. [Suspect]
     Active Substance: AZATHIOPRINE
     Route: 064
  6. ORAMORPH [Suspect]
     Active Substance: MORPHINE SULFATE
     Dosage: 15 MG, 3-6 TIMES PER DAY AS REQUIRED
     Route: 064
  7. CO-DYDRAMOL [Suspect]
     Active Substance: ACETAMINOPHEN\DIHYDROCODEINE
     Dosage: STRENGTH: 10/500, FOUR TIMES A DAY AS REQUIRED
     Route: 064
  8. OMEPRAZOLE. [Suspect]
     Active Substance: OMEPRAZOLE
     Route: 064
  9. TAPENTADOL [Suspect]
     Active Substance: TAPENTADOL
     Route: 064

REACTIONS (2)
  - Sepsis neonatal [Unknown]
  - Drug withdrawal syndrome neonatal [Not Recovered/Not Resolved]
